FAERS Safety Report 7528604-8 (Version None)
Quarter: 2011Q2

REPORT INFORMATION
  Report Type: 
  Country: None (occurrence: None)
  Receive Date: 20110607
  Receipt Date: 20040910
  Transmission Date: 20111010
  Serious: Yes (Death, Life-Threatening, Hospitalization)
  Sender: FDA-Public Use
  Company Number: PHNR2004AU01264

PATIENT
  Sex: Male

DRUGS (2)
  1. CLOZARIL [Suspect]
     Dosage: 700 MG, QD
     Dates: start: 19951023, end: 20040724
  2. VALPROATE SODIUM [Concomitant]
     Indication: EPILEPSY

REACTIONS (4)
  - ACUTE MYOCARDIAL INFARCTION [None]
  - ENCEPHALITIS [None]
  - COMA [None]
  - CONVULSION [None]
